FAERS Safety Report 25780784 (Version 1)
Quarter: 2025Q3

REPORT INFORMATION
  Report Type: Spontaneous
  Country: EU (occurrence: EU)
  Receive Date: 20250909
  Receipt Date: 20250909
  Transmission Date: 20251021
  Serious: Yes (Hospitalization)
  Sender: BEXIMCO PHARMACEUTICALS
  Company Number: EU-BEXIMCO-2025BEX00046

PATIENT
  Age: 72 Year
  Sex: Female

DRUGS (2)
  1. METFORMIN HYDROCHLORIDE [Suspect]
     Active Substance: METFORMIN HYDROCHLORIDE
     Indication: Type 2 diabetes mellitus
     Route: 048
     Dates: start: 2013
  2. PIOGLITAZONE [Concomitant]
     Active Substance: PIOGLITAZONE
     Route: 048
     Dates: start: 2013

REACTIONS (2)
  - Acute kidney injury [Recovered/Resolved]
  - Lactic acidosis [Recovered/Resolved]
